FAERS Safety Report 6127360-8 (Version None)
Quarter: 2009Q1

REPORT INFORMATION
  Report Type: 
  Country: None (occurrence: None)
  Receive Date: 20090319
  Receipt Date: 20090306
  Transmission Date: 20090719
  Serious: Yes (Hospitalization)
  Sender: FDA-Public Use
  Company Number: 2009AL001124

PATIENT
  Age: 47 Year
  Sex: Female
  Weight: 73.9363 kg

DRUGS (13)
  1. DIGOXIN [Suspect]
     Dosage: 0.125MG, DAILY, PO
     Route: 048
  2. RENAGEL [Concomitant]
  3. METOPROLOL [Concomitant]
  4. HYDRALAZINE HCL [Concomitant]
  5. NEPHROCAPS [Concomitant]
  6. IMDUR [Concomitant]
  7. DARBEPOETIN [Concomitant]
  8. OSOSORBIDE MONITRATE [Concomitant]
  9. FOLIC ACID [Concomitant]
  10. ENALAPRIL [Concomitant]
  11. THIAMINE HCL [Concomitant]
  12. VASOTEC [Concomitant]
  13. ZANTAC [Concomitant]

REACTIONS (10)
  - BACK PAIN [None]
  - CEREBRAL HAEMORRHAGE [None]
  - DIALYSIS [None]
  - GAIT DISTURBANCE [None]
  - HYPERTENSION [None]
  - MENTAL STATUS CHANGES [None]
  - RENAL FAILURE CHRONIC [None]
  - SINUS TACHYCARDIA [None]
  - SYNCOPE [None]
  - VAGINAL HAEMORRHAGE [None]
